FAERS Safety Report 8079843-1 (Version None)
Quarter: 2012Q1

REPORT INFORMATION
  Report Type: 
  Country: None (occurrence: None)
  Receive Date: 20120128
  Receipt Date: 20110830
  Transmission Date: 20120608
  Serious: No
  Sender: FDA-Public Use
  Company Number: US-ABBOTT-11P-163-0850672-00

PATIENT
  Sex: Female

DRUGS (2)
  1. UNKNOWN MEDICATION [Concomitant]
     Indication: AUTOIMMUNE DISORDER
  2. HUMIRA [Suspect]
     Indication: POLYARTHRITIS
     Dates: start: 20110801

REACTIONS (3)
  - FATIGUE [None]
  - PAIN [None]
  - INJECTION SITE PAIN [None]
